FAERS Safety Report 18691985 (Version 1)
Quarter: 2021Q1

REPORT INFORMATION
  Report Type: Spontaneous
  Country: CN (occurrence: CN)
  Receive Date: 20210102
  Receipt Date: 20210102
  Transmission Date: 20210419
  Serious: Yes (Other)
  Sender: FDA-Public Use
  Company Number: CN-GLAXOSMITHKLINE-CN2020APC255019

PATIENT
  Age: 75 Year
  Sex: Male

DRUGS (2)
  1. DOPAMINE [Suspect]
     Active Substance: DOPAMINE HYDROCHLORIDE
     Indication: PARKINSONISM
     Dosage: UNK
     Dates: start: 2020
  2. REQUIP [Suspect]
     Active Substance: ROPINIROLE HYDROCHLORIDE
     Indication: PARKINSONISM
     Dosage: 1 DF, QD
     Route: 048
     Dates: start: 2020

REACTIONS (2)
  - Somnolence [Recovered/Resolved]
  - Hypnopompic hallucination [Unknown]
